FAERS Safety Report 23379119 (Version 1)
Quarter: 2024Q1

REPORT INFORMATION
  Report Type: Report from Study
  Country: CA (occurrence: CA)
  Receive Date: 20240108
  Receipt Date: 20240108
  Transmission Date: 20240410
  Serious: Yes (Other)
  Sender: FDA-Public Use
  Company Number: CA-TAKEDA-CA202012967

PATIENT
  Sex: Male

DRUGS (3)
  1. LISDEXAMFETAMINE DIMESYLATE [Suspect]
     Active Substance: LISDEXAMFETAMINE DIMESYLATE
     Indication: Depression
     Dosage: 40 MILLIGRAM, QD
     Route: 048
  2. LISDEXAMFETAMINE DIMESYLATE [Suspect]
     Active Substance: LISDEXAMFETAMINE DIMESYLATE
     Indication: Suicidal ideation
  3. LISDEXAMFETAMINE DIMESYLATE [Suspect]
     Active Substance: LISDEXAMFETAMINE DIMESYLATE
     Indication: Post-traumatic stress disorder

REACTIONS (2)
  - Epilepsy [Unknown]
  - Product use in unapproved indication [Unknown]
